FAERS Safety Report 9537904 (Version 2)
Quarter: 2013Q3

REPORT INFORMATION
  Report Type: Report from Study
  Country: US (occurrence: US)
  Receive Date: 20130919
  Receipt Date: 20130919
  Transmission Date: 20140515
  Serious: Yes (Hospitalization, Other)
  Sender: FDA-Public Use
  Company Number: PHHO2013US008473

PATIENT
  Age: 79 Year
  Sex: Female
  Weight: 57.14 kg

DRUGS (9)
  1. METOPROLOL [Suspect]
     Indication: HYPERTENSION
     Dosage: 50 MG, QD
     Route: 048
     Dates: end: 20130612
  2. BLINDED FCC H5N1 TURKEY [Suspect]
     Indication: IMMUNISATION
     Route: 030
     Dates: start: 20130214
  3. BLINDED FCC H5N1 TURKEY [Suspect]
     Indication: IMMUNISATION
     Route: 030
     Dates: start: 20130214
  4. BLINDED NO VACCINATION RECEIVED [Suspect]
     Indication: IMMUNISATION
     Route: 030
     Dates: start: 20130214
  5. BLINDED FCC H5N1 TURKEY [Suspect]
     Route: 030
     Dates: start: 20130307
  6. BLINDED FCC H5N1 TURKEY [Suspect]
     Route: 030
     Dates: start: 20130307
  7. BLINDED NO VACCINATION RECEIVED [Suspect]
     Route: 030
     Dates: start: 20130307
  8. HYDROCHLOROTHIAZIDE [Concomitant]
     Indication: HYPERTENSION
     Dosage: 12.5 MG, QD
     Route: 048
  9. SERTRALINE [Concomitant]
     Dosage: 50 MG, QD
     Dates: start: 20130501

REACTIONS (3)
  - Back pain [Recovered/Resolved]
  - Dizziness [Recovered/Resolved]
  - Bradycardia [Not Recovered/Not Resolved]
